FAERS Safety Report 14134237 (Version 1)
Quarter: 2017Q4

REPORT INFORMATION
  Report Type: Spontaneous
  Country: US (occurrence: US)
  Receive Date: 20171026
  Receipt Date: 20171026
  Transmission Date: 20180321
  Serious: No
  Sender: FDA-Public Use
  Company Number: US-TESARO, INC.-US-2017TSO02393

PATIENT

DRUGS (1)
  1. ZEJULA [Suspect]
     Active Substance: NIRAPARIB
     Indication: MALIGNANT PERITONEAL NEOPLASM
     Dosage: 200 MG, UNK
     Dates: start: 20170530

REACTIONS (3)
  - Social anxiety disorder [Unknown]
  - Anxiety [Unknown]
  - Palpitations [Unknown]

NARRATIVE: CASE EVENT DATE: 201708
